FAERS Safety Report 23081697 (Version 1)
Quarter: 2023Q4

REPORT INFORMATION
  Report Type: Spontaneous
  Country: US (occurrence: US)
  Receive Date: 20231019
  Receipt Date: 20231019
  Transmission Date: 20240110
  Serious: Yes (Life-Threatening, Hospitalization, Other)
  Sender: FDA-Public Use
  Company Number: US-MLMSERVICE-20231005-4591751-1

PATIENT
  Age: 83 Year
  Sex: Female

DRUGS (1)
  1. VALACYCLOVIR HYDROCHLORIDE [Suspect]
     Active Substance: VALACYCLOVIR HYDROCHLORIDE
     Indication: Herpes zoster
     Dosage: UNK (APPROPRIATE DOSE)
     Route: 065

REACTIONS (6)
  - Encephalopathy [Recovering/Resolving]
  - Acute kidney injury [Recovered/Resolved]
  - Hypophagia [Unknown]
  - Nephropathy toxic [Unknown]
  - Neurotoxicity [Unknown]
  - Headache [Unknown]
